FAERS Safety Report 11319612 (Version 2)
Quarter: 2015Q3

REPORT INFORMATION
  Report Type: Report from Study
  Country: US (occurrence: US)
  Receive Date: 20150729
  Receipt Date: 20150822
  Transmission Date: 20151125
  Serious: Yes (Hospitalization, Other)
  Sender: FDA-Public Use
  Company Number: US-ABBVIE-15K-163-1432557-00

PATIENT
  Sex: Male
  Weight: 114.6 kg

DRUGS (2)
  1. HUMIRA [Suspect]
     Active Substance: ADALIMUMAB
     Indication: PSORIATIC ARTHROPATHY
     Route: 065
     Dates: start: 2013, end: 2015
  2. HUMIRA [Suspect]
     Active Substance: ADALIMUMAB
     Route: 065
     Dates: start: 20150505

REACTIONS (29)
  - Episcleritis [Unknown]
  - Rash [Unknown]
  - Sinusitis [Unknown]
  - Insomnia [Unknown]
  - Deep vein thrombosis [Unknown]
  - Conjunctivitis [Unknown]
  - Pain in extremity [Unknown]
  - Cholelithiasis [Unknown]
  - Constipation [Unknown]
  - Atrioventricular block complete [Unknown]
  - Cerebrovascular accident [Unknown]
  - Muscular weakness [Unknown]
  - Hepatic steatosis [Unknown]
  - Fall [Unknown]
  - Coma [Recovered/Resolved]
  - Deafness [Not Recovered/Not Resolved]
  - Encephalopathy [Unknown]
  - Bradycardia [Unknown]
  - Type 2 diabetes mellitus [Unknown]
  - Carotid arteriosclerosis [Unknown]
  - Cardiomegaly [Unknown]
  - Pyrexia [Unknown]
  - Cervical spinal stenosis [Unknown]
  - Rheumatoid arthritis [Unknown]
  - Meningitis aseptic [Unknown]
  - Leukocytosis [Unknown]
  - Hypertension [Unknown]
  - Hyperlipidaemia [Unknown]
  - Carotid artery stenosis [Unknown]

NARRATIVE: CASE EVENT DATE: 2015
